FAERS Safety Report 23601048 (Version 1)
Quarter: 2024Q1

REPORT INFORMATION
  Report Type: Report from Study
  Country: CN (occurrence: CN)
  Receive Date: 20240306
  Receipt Date: 20240306
  Transmission Date: 20240410
  Serious: Yes (Other)
  Sender: FDA-Public Use
  Company Number: CN-UCBSA-2024010357

PATIENT

DRUGS (2)
  1. LEVETIRACETAM [Interacting]
     Active Substance: LEVETIRACETAM
     Indication: Epilepsy
     Dosage: UNK
  2. MEROPENEM [Interacting]
     Active Substance: MEROPENEM
     Indication: Infection
     Dosage: UNK

REACTIONS (3)
  - Liver injury [Unknown]
  - Renal injury [Unknown]
  - Drug interaction [Unknown]
